FAERS Safety Report 6000396-3 (Version None)
Quarter: 2008Q4

REPORT INFORMATION
  Report Type: 
  Country: None (occurrence: None)
  Receive Date: 20081211
  Receipt Date: 20081211
  Transmission Date: 20090506
  Serious: Yes (Hospitalization)
  Sender: FDA-Public Use
  Company Number: None

PATIENT
  Sex: Male

DRUGS (8)
  1. NEXAVAR [Suspect]
     Indication: RENAL CANCER
     Dosage: 400MG BID PO
     Route: 048
     Dates: start: 20080601, end: 20080910
  2. TOPROL-XL [Concomitant]
  3. LASIX [Concomitant]
  4. HUMULIN [Concomitant]
  5. ALBUTERAL [Concomitant]
  6. ADVAIR DISKUS 250/50 [Concomitant]
  7. JANUVIA [Concomitant]
  8. LOVENOX [Concomitant]

REACTIONS (3)
  - HAEMORRHAGE [None]
  - PERICARDIAL EFFUSION [None]
  - PLEURAL EFFUSION [None]
